FAERS Safety Report 12166232 (Version 1)
Quarter: 2016Q1

REPORT INFORMATION
  Report Type: Spontaneous
  Country: CA (occurrence: CA)
  Receive Date: 20160309
  Receipt Date: 20160309
  Transmission Date: 20160526
  Serious: Yes (Hospitalization)
  Sender: FDA-Public Use
  Company Number: CA-PFIZER INC-2016138814

PATIENT
  Age: 71 Year
  Sex: Female

DRUGS (3)
  1. AMLODIPINE [Concomitant]
     Active Substance: AMLODIPINE BESYLATE
     Dosage: 2.5 MG, DAILY
  2. PANTOPRAZOLE [Concomitant]
     Active Substance: PANTOPRAZOLE SODIUM
     Dosage: 40 MG, DAILY
  3. LIOTHYRONINE SODIUM. [Suspect]
     Active Substance: LIOTHYRONINE SODIUM
     Dosage: 25 UG, 1X/DAY

REACTIONS (7)
  - Product preparation error [Unknown]
  - Delirium [Recovering/Resolving]
  - Acute myocardial infarction [Recovering/Resolving]
  - Hyperthyroidism [Recovering/Resolving]
  - Renal injury [Recovering/Resolving]
  - Overdose [Unknown]
  - Toxicity to various agents [Unknown]
